FAERS Safety Report 4351434-5 (Version None)
Quarter: 2004Q2

REPORT INFORMATION
  Report Type: 
  Country: None (occurrence: None)
  Receive Date: 20040503
  Receipt Date: 20031211
  Transmission Date: 20050107
  Serious: Yes (Death, Hospitalization)
  Sender: FDA-Public Use
  Company Number: PHBS2003JP14028

PATIENT
  Age: 56 Year
  Sex: Male
  Weight: 79 kg

DRUGS (4)
  1. GLEEVEC [Suspect]
     Indication: GASTROINTESTINAL STROMAL TUMOUR
     Dosage: 200 MG, BID
     Route: 048
     Dates: start: 20031023, end: 20031122
  2. TEGRETOL [Concomitant]
     Dosage: 200 MG/D
     Route: 048
     Dates: start: 20031021, end: 20031122
  3. VOLTAREN - SLOW RELEASE ^NOVARTIS^ [Concomitant]
     Dosage: 75 MG/D
     Route: 048
     Dates: start: 20031021
  4. FAMOTIDINE [Concomitant]
     Dosage: 40 MG/D
     Route: 048
     Dates: start: 20031021

REACTIONS (13)
  - DEPRESSED LEVEL OF CONSCIOUSNESS [None]
  - DRUG ERUPTION [None]
  - ERYTHEMA [None]
  - FACE OEDEMA [None]
  - MALAISE [None]
  - MALIGNANT NEOPLASM PROGRESSION [None]
  - PRURITUS [None]
  - PYREXIA [None]
  - QUADRIPLEGIA [None]
  - RASH [None]
  - RASH GENERALISED [None]
  - RASH PUSTULAR [None]
  - STOMATITIS [None]
